FAERS Safety Report 13517148 (Version 2)
Quarter: 2017Q3

REPORT INFORMATION
  Report Type: Report from Study
  Country: US (occurrence: US)
  Receive Date: 20170505
  Receipt Date: 20170726
  Transmission Date: 20171127
  Serious: Yes (Hospitalization)
  Sender: FDA-Public Use
  Company Number: US-ACADIA PHARMACEUTICALS INC.-ACA-2017-003053

PATIENT
  Age: 79 Year
  Sex: Female

DRUGS (6)
  1. NUPLAZID [Suspect]
     Active Substance: PIMAVANSERIN TARTRATE
     Indication: HALLUCINATION
     Dosage: 34 MG QD
     Route: 048
     Dates: start: 20170423
  2. NUPLAZID [Suspect]
     Active Substance: PIMAVANSERIN TARTRATE
     Indication: DELUSION
  3. NUPLAZID [Suspect]
     Active Substance: PIMAVANSERIN TARTRATE
     Indication: PARKINSON^S DISEASE PSYCHOSIS
     Dosage: 34 MG, QD
     Route: 048
     Dates: start: 20170413, end: 201704
  4. CARBIDOPA/LEVODOPA [Concomitant]
     Active Substance: CARBIDOPA\LEVODOPA
     Indication: PRODUCT USED FOR UNKNOWN INDICATION
  5. REQUIP [Concomitant]
     Active Substance: ROPINIROLE HYDROCHLORIDE
     Indication: PRODUCT USED FOR UNKNOWN INDICATION
  6. ANTI-NAUSEA [Suspect]
     Active Substance: UNSPECIFIED INGREDIENT
     Indication: ABDOMINAL DISCOMFORT
     Dosage: UNK
     Dates: start: 20170412

REACTIONS (12)
  - Gastroenteritis viral [Not Recovered/Not Resolved]
  - Fall [Unknown]
  - Malaise [Unknown]
  - Nausea [Unknown]
  - Drug dose omission [Unknown]
  - Dehydration [Unknown]
  - Visual impairment [Unknown]
  - Vomiting [Unknown]
  - Hallucination [Unknown]
  - Incorrect route of drug administration [Unknown]
  - Throat irritation [Recovered/Resolved]
  - Peripheral swelling [Unknown]

NARRATIVE: CASE EVENT DATE: 20161116
